FAERS Safety Report 18456032 (Version 1)
Quarter: 2020Q4

REPORT INFORMATION
  Report Type: Spontaneous
  Country: CN (occurrence: CN)
  Receive Date: 20201103
  Receipt Date: 20201103
  Transmission Date: 20210114
  Serious: Yes (Other)
  Sender: FDA-Public Use
  Company Number: CN-B.I. PHARMACEUTICALS,INC./RIDGEFIELD-2020-BI-057721

PATIENT
  Age: 54 Year
  Sex: Female

DRUGS (5)
  1. ZEFEI [Suspect]
     Active Substance: GEMCITABINE HYDROCHLORIDE
     Route: 042
     Dates: start: 20200806, end: 20200806
  2. ZEFEI [Suspect]
     Active Substance: GEMCITABINE HYDROCHLORIDE
     Indication: NEOPLASM
     Route: 042
     Dates: start: 20200730, end: 20200730
  3. SODIUM CHLORIDE. [Concomitant]
     Active Substance: SODIUM CHLORIDE
     Route: 042
     Dates: start: 20200806, end: 20200806
  4. GILOTRIF [Suspect]
     Active Substance: AFATINIB
     Indication: NEOPLASM
     Route: 048
     Dates: start: 20200807, end: 20200807
  5. SODIUM CHLORIDE. [Concomitant]
     Active Substance: SODIUM CHLORIDE
     Indication: DRUG THERAPY
     Route: 042
     Dates: start: 20200730, end: 20200730

REACTIONS (2)
  - Myelosuppression [Recovering/Resolving]
  - Leukopenia [Recovering/Resolving]

NARRATIVE: CASE EVENT DATE: 20200807
